FAERS Safety Report 12469457 (Version 5)
Quarter: 2016Q3

REPORT INFORMATION
  Report Type: Spontaneous
  Country: US (occurrence: US)
  Receive Date: 20160615
  Receipt Date: 20160727
  Transmission Date: 20161109
  Serious: No
  Sender: FDA-Public Use
  Company Number: US-ACTELION-A-US2014-94902

PATIENT
  Age: 75 Year
  Sex: Female

DRUGS (6)
  1. OXYGEN. [Concomitant]
     Active Substance: OXYGEN
  2. RIOCIGUAT [Concomitant]
     Active Substance: RIOCIGUAT
     Dosage: UNK
     Dates: end: 20160720
  3. TYVASO [Concomitant]
     Active Substance: TREPROSTINIL
  4. ASPIRIN. [Concomitant]
     Active Substance: ASPIRIN
  5. OPSUMIT [Suspect]
     Active Substance: MACITENTAN
     Indication: PULMONARY ARTERIAL HYPERTENSION
     Dosage: 10 MG, QD
     Route: 048
     Dates: start: 20131110
  6. TREPROSTINIL DIOLAMIN [Suspect]
     Active Substance: TREPROSTINIL DIOLAMINE
     Indication: PRODUCT USED FOR UNKNOWN INDICATION
     Dosage: 0.25 MG, BID
     Route: 065

REACTIONS (20)
  - Abdominal discomfort [Unknown]
  - Influenza [Unknown]
  - Feeling abnormal [Unknown]
  - Pneumonia [Unknown]
  - Oedema peripheral [Unknown]
  - Herpes zoster [Unknown]
  - Pain [Unknown]
  - Dyspnoea exertional [Unknown]
  - Headache [Unknown]
  - Myalgia [Unknown]
  - Hypotension [Unknown]
  - Dyspnoea [Unknown]
  - Bronchitis [Unknown]
  - Dizziness [Unknown]
  - Dyspepsia [Unknown]
  - Epistaxis [Unknown]
  - Fibromyalgia [Unknown]
  - Hypersensitivity [Unknown]
  - Fatigue [Unknown]
  - Chest pain [Unknown]

NARRATIVE: CASE EVENT DATE: 20140208
